FAERS Safety Report 24448914 (Version 2)
Quarter: 2024Q4

REPORT INFORMATION
  Report Type: Spontaneous
  Country: JP (occurrence: JP)
  Receive Date: 20241017
  Receipt Date: 20241112
  Transmission Date: 20250114
  Serious: Yes (Hospitalization, Other)
  Sender: GLAXOSMITHKLINE
  Company Number: JP-GSKJP-JP2024JPN125110AA

PATIENT

DRUGS (14)
  1. DAPRODUSTAT [Suspect]
     Active Substance: DAPRODUSTAT
     Indication: Nephrogenic anaemia
     Dosage: 4 MG, INCREASED
     Route: 048
  2. DAPRODUSTAT [Suspect]
     Active Substance: DAPRODUSTAT
     Dosage: 12 MG
     Route: 048
  3. FYCOMPA [Concomitant]
     Active Substance: PERAMPANEL
     Dosage: UNK
  4. Vasolan [Concomitant]
     Dosage: UNK
  5. CARVEDILOL [Concomitant]
     Active Substance: CARVEDILOL
     Dosage: UNK
  6. AMIODARONE [Concomitant]
     Active Substance: AMIODARONE
     Dosage: UNK
  7. ELDECALCITOL [Concomitant]
     Active Substance: ELDECALCITOL
     Dosage: UNK
  8. LEVOTHYROXINE [Concomitant]
     Active Substance: LEVOTHYROXINE
     Dosage: UNK
  9. RABEPRAZOLE [Concomitant]
     Active Substance: RABEPRAZOLE
     Dosage: UNK
  10. TELEMIN SOFT [Concomitant]
     Dosage: UNK
  11. PREDNISOLONE [Concomitant]
     Active Substance: PREDNISOLONE
     Dosage: UNK
  12. LEXAPRO [Concomitant]
     Active Substance: ESCITALOPRAM OXALATE
     Dosage: UNK
  13. POLAPREZINC [Concomitant]
     Active Substance: POLAPREZINC
     Dosage: UNK
  14. TACROLIMUS [Concomitant]
     Active Substance: TACROLIMUS
     Dosage: UNK

REACTIONS (8)
  - Hospitalisation [Recovered/Resolved]
  - Kidney transplant rejection [Recovered/Resolved]
  - Acute kidney injury [Recovered/Resolved]
  - Platelet count decreased [Recovered/Resolved]
  - Fibrin D dimer increased [Recovered/Resolved]
  - Platelet count increased [Unknown]
  - Haemoglobin abnormal [Unknown]
  - Product use issue [Unknown]
